FAERS Safety Report 9513203 (Version 3)
Quarter: 2013Q3

REPORT INFORMATION
  Report Type: Spontaneous
  Country: GB (occurrence: GB)
  Receive Date: 20130910
  Receipt Date: 20130927
  Transmission Date: 20140515
  Serious: Yes (Other)
  Sender: FDA-Public Use
  Company Number: GB-PFIZER INC-2013255422

PATIENT
  Age: 66 Year
  Sex: Female
  Weight: 165 kg

DRUGS (3)
  1. RAMIPRIL [Suspect]
     Dosage: 5 MG, UNK
     Route: 065
  2. DOXAZOSIN [Concomitant]
     Dosage: UNK
     Dates: start: 20130715, end: 20130719
  3. AMLODIPINE [Concomitant]
     Dosage: UNK

REACTIONS (8)
  - Palpitations [Unknown]
  - Blood pressure increased [Unknown]
  - Headache [Unknown]
  - Vision blurred [Unknown]
  - Tongue ulceration [Unknown]
  - Depressed mood [Unknown]
  - Joint swelling [Unknown]
  - Balance disorder [Unknown]
